FAERS Safety Report 12644828 (Version 2)
Quarter: 2016Q3

REPORT INFORMATION
  Report Type: Spontaneous
  Country: US (occurrence: US)
  Receive Date: 20160811
  Receipt Date: 20160816
  Transmission Date: 20161109
  Serious: Yes (Other)
  Sender: FDA-Public Use
  Company Number: US-PFIZER INC-2016382934

PATIENT
  Age: 35 Year
  Sex: Female

DRUGS (1)
  1. GEODON [Suspect]
     Active Substance: ZIPRASIDONE HYDROCHLORIDE\ZIPRASIDONE MESYLATE
     Indication: INSOMNIA
     Dosage: 40 MG, 1X/DAY, AT NIGHT
     Route: 048
     Dates: start: 201601, end: 201603

REACTIONS (13)
  - Feeling abnormal [Recovered/Resolved]
  - Product use issue [Recovered/Resolved]
  - Dyskinesia [Recovered/Resolved]
  - Hallucination [Recovered/Resolved]
  - Tinnitus [Recovering/Resolving]
  - Heart rate increased [Recovered/Resolved]
  - Derealisation [Recovered/Resolved]
  - Insomnia [Recovered/Resolved]
  - Condition aggravated [Recovered/Resolved]
  - Intentional product misuse [Recovered/Resolved]
  - Tardive dyskinesia [Recovered/Resolved]
  - Hyperhidrosis [Recovered/Resolved]
  - Impaired work ability [Recovered/Resolved]

NARRATIVE: CASE EVENT DATE: 2016
